FAERS Safety Report 18479370 (Version 1)
Quarter: 2020Q4

REPORT INFORMATION
  Report Type: Spontaneous
  Country: US (occurrence: US)
  Receive Date: 20201106
  Receipt Date: 20201106
  Transmission Date: 20210114
  Serious: No
  Sender: FDA-Public Use
  Company Number: None

PATIENT
  Age: 31 Year
  Sex: Female

DRUGS (1)
  1. TEMOZOLOMIDE 250MG [Suspect]
     Active Substance: TEMOZOLOMIDE
     Indication: BRAIN NEOPLASM
     Route: 048
     Dates: start: 20200804

REACTIONS (4)
  - Seizure [None]
  - Dehydration [None]
  - Weight decreased [None]
  - Vomiting [None]

NARRATIVE: CASE EVENT DATE: 20200929
